FAERS Safety Report 9287116 (Version 1)
Quarter: 2013Q2

REPORT INFORMATION
  Report Type: Spontaneous
  Country: US (occurrence: US)
  Receive Date: 20130513
  Receipt Date: 20130513
  Transmission Date: 20140414
  Serious: Yes (Other)
  Sender: FDA-Public Use
  Company Number: US-PFIZER INC-2013145637

PATIENT
  Age: 52 Year
  Sex: Male
  Weight: 86.17 kg

DRUGS (5)
  1. NEURONTIN [Suspect]
     Indication: NERVE INJURY
     Dosage: 50 MG, 2X/DAY
     Route: 048
  2. NEURONTIN [Suspect]
     Dosage: 100 MG, 2X/DAY
     Route: 048
  3. NEURONTIN [Suspect]
     Dosage: 150 MG, 2X/DAY
     Route: 048
  4. NEURONTIN [Suspect]
     Dosage: UNK, 2X/DAY
     Route: 048
  5. CYMBALTA [Suspect]
     Dosage: UNK

REACTIONS (3)
  - Rash [Recovered/Resolved]
  - Skin lesion [Recovered/Resolved]
  - Depression [Recovered/Resolved]
